FAERS Safety Report 11649796 (Version 1)
Quarter: 2015Q4

REPORT INFORMATION
  Report Type: Report from Study
  Country: US (occurrence: US)
  Receive Date: 20151021
  Receipt Date: 20151021
  Transmission Date: 20160304
  Serious: Yes (Hospitalization)
  Sender: FDA-Public Use
  Company Number: US-VERTEX PHARMACEUTICALS-2015-004576

PATIENT
  Age: 34 Year
  Sex: Male

DRUGS (1)
  1. KALYDECO [Suspect]
     Active Substance: IVACAFTOR
     Indication: CYSTIC FIBROSIS
     Dosage: UNK
     Route: 048
     Dates: start: 20140514

REACTIONS (3)
  - Heart rate decreased [Unknown]
  - Syncope [Unknown]
  - Cerebral cyst [Unknown]

NARRATIVE: CASE EVENT DATE: 20151012
